FAERS Safety Report 15368131 (Version 1)
Quarter: 2018Q3

REPORT INFORMATION
  Report Type: Spontaneous
  Country: None (occurrence: US)
  Receive Date: 20180910
  Receipt Date: 20180910
  Transmission Date: 20181010
  Serious: No
  Sender: FDA-Public Use
  Company Number: US-AKRON, INC.-2054802

PATIENT
  Sex: Female

DRUGS (1)
  1. KETOTIFEN FUMARATE OPHTHALMIC SOLUTION [Suspect]
     Active Substance: KETOTIFEN FUMARATE

REACTIONS (2)
  - Eyelid margin crusting [None]
  - Lacrimation increased [None]
